FAERS Safety Report 6238103-1 (Version None)
Quarter: 2009Q2

REPORT INFORMATION
  Report Type: 
  Country: None (occurrence: None)
  Receive Date: 20090622
  Receipt Date: 20090615
  Transmission Date: 20091009
  Serious: Yes (Other)
  Sender: FDA-Public Use
  Company Number: CA-ALLERGAN-0908407US

PATIENT
  Age: 16 Year
  Sex: Male

DRUGS (1)
  1. BOTOX [Suspect]
     Indication: HYPERHIDROSIS
     Dosage: 200 UNITS, SINGLE
     Route: 023
     Dates: start: 20081016, end: 20081016

REACTIONS (3)
  - ARTHRALGIA [None]
  - ASTHENIA [None]
  - PAIN IN EXTREMITY [None]
